FAERS Safety Report 10379416 (Version 1)
Quarter: 2014Q3

REPORT INFORMATION
  Report Type: Spontaneous
  Country: CH (occurrence: CH)
  Receive Date: 20140812
  Receipt Date: 20140812
  Transmission Date: 20150326
  Serious: Yes (Hospitalization)
  Sender: FDA-Public Use
  Company Number: CH-PFIZER INC-2014221363

PATIENT
  Age: 67 Year
  Sex: Male

DRUGS (6)
  1. SYMFONA N [Concomitant]
     Active Substance: ORLISTAT
  2. CYMBALTA [Suspect]
     Active Substance: DULOXETINE HYDROCHLORIDE
     Dosage: 60 MG, 1X/DAY
     Route: 048
  3. SERESTA [Concomitant]
     Active Substance: OXAZEPAM
     Dosage: UNK
  4. PANTOZOL [Concomitant]
     Active Substance: PANTOPRAZOLE SODIUM
     Dosage: UNK
  5. CAVERJECT IMPULSE [Suspect]
     Active Substance: ALPROSTADIL
     Indication: ERECTILE DYSFUNCTION
     Dosage: 5 UG, AS NEEDED
     Route: 017
     Dates: start: 201405, end: 20140703
  6. LIORESAL [Concomitant]
     Active Substance: BACLOFEN
     Dosage: UNK

REACTIONS (5)
  - Nausea [None]
  - Headache [None]
  - Cerebral vasoconstriction [Recovering/Resolving]
  - Nystagmus [None]
  - Vertigo [None]

NARRATIVE: CASE EVENT DATE: 20140705
